FAERS Safety Report 5825638-6 (Version None)
Quarter: 2008Q3

REPORT INFORMATION
  Report Type: 
  Country: None (occurrence: None)
  Receive Date: 20080729
  Receipt Date: 20080728
  Transmission Date: 20090109
  Serious: Yes (Hospitalization)
  Sender: FDA-Public Use
  Company Number: D0057525A

PATIENT
  Age: 71 Year
  Sex: Female
  Weight: 64 kg

DRUGS (4)
  1. REQUIP [Suspect]
     Indication: PARKINSON'S DISEASE
     Dosage: 8MG PER DAY
     Route: 048
     Dates: start: 20080521, end: 20080603
  2. CARBIDOPA AND LEVODOPA [Suspect]
     Indication: PARKINSON'S DISEASE
     Dosage: 187.5MG THREE TIMES PER DAY
     Route: 048
     Dates: end: 20080101
  3. REQUIP [Concomitant]
     Indication: PARKINSON'S DISEASE
     Dosage: 3MG THREE TIMES PER DAY
     Route: 048
     Dates: end: 20080101
  4. PROPRANOLOL [Concomitant]
     Dosage: 20MG TWICE PER DAY
     Route: 048

REACTIONS (7)
  - AKINESIA [None]
  - BRADYKINESIA [None]
  - GAIT DISTURBANCE [None]
  - MOTOR DYSFUNCTION [None]
  - MUSCULAR WEAKNESS [None]
  - MYALGIA [None]
  - PARKINSON'S DISEASE [None]
